FAERS Safety Report 13039013 (Version 1)
Quarter: 2016Q4

REPORT INFORMATION
  Report Type: Spontaneous
  Country: US (occurrence: US)
  Receive Date: 20161219
  Receipt Date: 20161219
  Transmission Date: 20170207
  Serious: Yes (Hospitalization)
  Sender: FDA-Public Use
  Company Number: US-AXELLIA-001018

PATIENT
  Age: 64 Year
  Sex: Female

DRUGS (1)
  1. VANCOMYCIN [Suspect]
     Active Substance: VANCOMYCIN
     Indication: PROPHYLAXIS
     Dosage: 2000 MG AND 1000 MG DOSE APPROXIMATELY THREE HOURS APART TOTALING 17 MG/KG OF VANCOMYCIN.

REACTIONS (2)
  - Acute kidney injury [Unknown]
  - Drug level increased [Unknown]
